FAERS Safety Report 17725705 (Version 1)
Quarter: 2020Q2

REPORT INFORMATION
  Report Type: Spontaneous
  Country: AT (occurrence: AT)
  Receive Date: 20200429
  Receipt Date: 20200429
  Transmission Date: 20200714
  Serious: Yes (Other)
  Sender: FDA-Public Use
  Company Number: AT-ELI_LILLY_AND_COMPANY-AT202004009511

PATIENT
  Age: 61 Year
  Sex: Female

DRUGS (4)
  1. ANASTROZOL [Concomitant]
     Active Substance: ANASTROZOLE
     Indication: BREAST CANCER METASTATIC
     Dosage: 1 MG, DAILY
     Route: 065
  2. DENOSUMAB [Concomitant]
     Active Substance: DENOSUMAB
     Indication: BREAST CANCER METASTATIC
     Dosage: 120 MG, MONTHLY (1/M)
     Route: 065
  3. ABEMACICLIB 150MG [Suspect]
     Active Substance: ABEMACICLIB
     Indication: BREAST CANCER METASTATIC
     Dosage: 150 MG, BID
     Route: 065
     Dates: start: 201903
  4. CALCIUM + VITAMIN D3 [Concomitant]
     Active Substance: CALCIUM\CHOLECALCIFEROL
     Indication: BREAST CANCER METASTATIC
     Dosage: UNK, DAILY
     Route: 065

REACTIONS (9)
  - Osteosclerosis [Unknown]
  - Periodontitis [Unknown]
  - Lymphadenopathy [Unknown]
  - Pulmonary mass [Unknown]
  - Metastases to bone [Unknown]
  - Skin disorder [Unknown]
  - Gingivitis [Unknown]
  - Breast pain [Unknown]
  - Erythema [Unknown]

NARRATIVE: CASE EVENT DATE: 201911
